FAERS Safety Report 19424381 (Version 2)
Quarter: 2021Q3

REPORT INFORMATION
  Report Type: Spontaneous
  Country: US (occurrence: US)
  Receive Date: 20210616
  Receipt Date: 20210914
  Transmission Date: 20211014
  Serious: No
  Sender: FDA-Public Use
  Company Number: US-SK LIFE SCIENCE, INC.-SKPVG-2021-000476

PATIENT

DRUGS (14)
  1. XCOPRI [Suspect]
     Active Substance: CENOBAMATE
     Dosage: 150 MILLIGRAM, QD
     Route: 048
     Dates: start: 20210523, end: 20210605
  2. LORAZEPAM. [Suspect]
     Active Substance: LORAZEPAM
     Indication: PRODUCT USED FOR UNKNOWN INDICATION
     Dosage: 1 MILLIGRAM, EVERY 4 TO 6 HOURS PRN
     Route: 065
  3. CLONAZEPAM. [Suspect]
     Active Substance: CLONAZEPAM
     Indication: PRODUCT USED FOR UNKNOWN INDICATION
     Dosage: .5 MILLIGRAM, 2 TAB TID
     Route: 065
  4. XCOPRI [Suspect]
     Active Substance: CENOBAMATE
     Indication: EPILEPSY
     Dosage: 12.5 MILLIGRAM, QD
     Route: 048
     Dates: start: 20210328, end: 20210410
  5. APTIOM [Suspect]
     Active Substance: ESLICARBAZEPINE ACETATE
     Indication: PRODUCT USED FOR UNKNOWN INDICATION
     Dosage: 900 MILLIGRAM, QD
     Route: 065
  6. VIMPAT [Suspect]
     Active Substance: LACOSAMIDE
     Indication: PRODUCT USED FOR UNKNOWN INDICATION
     Dosage: 200 MILLIGRAM, 1 TABLET, BID
     Route: 065
  7. XCOPRI [Suspect]
     Active Substance: CENOBAMATE
     Dosage: 50 MILLIGRAM, QD
     Route: 048
     Dates: start: 20210425, end: 20210508
  8. MEDROXYPROGESTERONE [Suspect]
     Active Substance: MEDROXYPROGESTERONE
     Indication: PRODUCT USED FOR UNKNOWN INDICATION
     Dosage: 10 MILLIGRAM  QD 2 TABLETS
     Route: 065
  9. XCOPRI [Suspect]
     Active Substance: CENOBAMATE
     Dosage: 25 MILLIGRAM, QD
     Route: 048
     Dates: start: 20210411, end: 20210424
  10. XCOPRI [Suspect]
     Active Substance: CENOBAMATE
     Dosage: 100 MILLIGRAM, QD
     Route: 048
     Dates: start: 20210509, end: 20210522
  11. PAROXETINE. [Suspect]
     Active Substance: PAROXETINE
     Indication: PRODUCT USED FOR UNKNOWN INDICATION
     Dosage: 30 MILLIGRAM, QD, 1 TAB
     Route: 065
  12. XCOPRI [Suspect]
     Active Substance: CENOBAMATE
     Dosage: 12.5 MILLIGRAM, QD
     Route: 048
     Dates: start: 20210627, end: 20210707
  13. APTIOM [Suspect]
     Active Substance: ESLICARBAZEPINE ACETATE
     Dosage: 600 MILLIGRAM, QD
     Route: 065
     Dates: start: 20210627
  14. ZONEGRAN [Suspect]
     Active Substance: ZONISAMIDE
     Indication: PRODUCT USED FOR UNKNOWN INDICATION
     Dosage: 100 MILLIGRAM, 4 TABLETS QID IN AM
     Route: 065

REACTIONS (6)
  - Fatigue [Recovered/Resolved]
  - Rash pruritic [Recovered/Resolved]
  - Rash macular [Recovered/Resolved]
  - Blister [Recovered/Resolved]
  - Aphthous ulcer [Recovered/Resolved]
  - Dizziness [Recovered/Resolved]

NARRATIVE: CASE EVENT DATE: 20210328
